FAERS Safety Report 25443902 (Version 1)
Quarter: 2025Q2

REPORT INFORMATION
  Report Type: Report from Study
  Country: FR (occurrence: FR)
  Receive Date: 20250617
  Receipt Date: 20250617
  Transmission Date: 20250716
  Serious: Yes (Other)
  Sender: AUROBINDO
  Company Number: FR-MYLANLABS-2025M1042657

PATIENT

DRUGS (10)
  1. ATAZANAVIR [Suspect]
     Active Substance: ATAZANAVIR
     Indication: HIV-2 infection
     Dosage: 150 MILLIGRAM, ONCE A DAY
     Route: 065
  2. ATAZANAVIR [Suspect]
     Active Substance: ATAZANAVIR
     Indication: Multiple-drug resistance
  3. BICTEGRAVIR\EMTRICITABINE\TENOFOVIR ALAFENAMIDE [Suspect]
     Active Substance: BICTEGRAVIR\EMTRICITABINE\TENOFOVIR ALAFENAMIDE
     Indication: HIV-2 infection
     Dosage: UNK UNK, ONCE A DAY
     Route: 065
  4. BICTEGRAVIR\EMTRICITABINE\TENOFOVIR ALAFENAMIDE [Suspect]
     Active Substance: BICTEGRAVIR\EMTRICITABINE\TENOFOVIR ALAFENAMIDE
     Indication: Multiple-drug resistance
  5. FOSCARNET [Suspect]
     Active Substance: FOSCARNET
     Indication: HIV-2 infection
     Dosage: 90 MILLIGRAM/KILOGRAM, ONCE A DAY
     Route: 065
  6. FOSCARNET [Suspect]
     Active Substance: FOSCARNET
     Indication: Multiple-drug resistance
  7. IBALIZUMAB [Suspect]
     Active Substance: IBALIZUMAB
     Indication: HIV-2 infection
     Route: 042
  8. IBALIZUMAB [Suspect]
     Active Substance: IBALIZUMAB
     Indication: Multiple-drug resistance
     Route: 042
  9. ZIDOVUDINE [Suspect]
     Active Substance: ZIDOVUDINE
     Indication: HIV-2 infection
     Dosage: 250 MILLIGRAM, ONCE A DAY
     Route: 065
  10. ZIDOVUDINE [Suspect]
     Active Substance: ZIDOVUDINE
     Indication: Multiple-drug resistance

REACTIONS (1)
  - Pathogen resistance [Unknown]
